FAERS Safety Report 9288654 (Version 1)
Quarter: 2013Q2

REPORT INFORMATION
  Report Type: Spontaneous
  Country: US (occurrence: US)
  Receive Date: 20130514
  Receipt Date: 20130514
  Transmission Date: 20140414
  Serious: Yes (Other)
  Sender: FDA-Public Use
  Company Number: PHEH2013US010438

PATIENT
  Age: 45 Year
  Sex: Male

DRUGS (1)
  1. DIOVAN [Suspect]

REACTIONS (2)
  - Diabetes mellitus [Unknown]
  - Hypertension [Unknown]
